FAERS Safety Report 4991552-1 (Version None)
Quarter: 2006Q2

REPORT INFORMATION
  Report Type: 
  Country: None (occurrence: None)
  Receive Date: 20060502
  Receipt Date: 20060419
  Transmission Date: 20061013
  Serious: Yes (Other)
  Sender: FDA-Public Use
  Company Number: 200611685BCC

PATIENT
  Sex: Female
  Weight: 70.7611 kg

DRUGS (2)
  1. ALEVE [Suspect]
     Indication: MYALGIA
     Dosage: 220 MG, QD, ORAL
     Route: 048
  2. METOPROLOL TARTRATE [Concomitant]

REACTIONS (1)
  - BLOOD PRESSURE INCREASED [None]
